FAERS Safety Report 9123955 (Version 2)
Quarter: 2013Q1

REPORT INFORMATION
  Report Type: Spontaneous
  Country: US (occurrence: US)
  Receive Date: 20130227
  Receipt Date: 20130325
  Transmission Date: 20140127
  Serious: Yes (Other)
  Sender: FDA-Public Use
  Company Number: US-PFIZER INC-2013067936

PATIENT
  Age: 48 Year
  Sex: Male
  Weight: 88.64 kg

DRUGS (17)
  1. IRINOTECAN HCL [Suspect]
     Indication: COLORECTAL CANCER METASTATIC
     Dosage: EVERY CYCLE
     Route: 042
     Dates: start: 20130116, end: 20130116
  2. IRINOTECAN HCL [Suspect]
     Dosage: EVERY CYCLE
     Route: 042
     Dates: start: 20130129, end: 20130129
  3. IRINOTECAN HCL [Suspect]
     Dosage: EVERY CYCLE
     Route: 042
     Dates: start: 20130213, end: 20130213
  4. FLUOROURACIL [Suspect]
     Indication: COLORECTAL CANCER METASTATIC
     Dosage: EVERY CYCLE
     Route: 042
     Dates: start: 20130116
  5. FLUOROURACIL [Suspect]
     Dosage: EVERY CYCLE
     Route: 042
     Dates: start: 20130213
  6. ZALTRAP [Suspect]
     Indication: COLORECTAL CANCER METASTATIC
     Dosage: 4 MG/KG (354 MG), EVERY TWO WEEKS (EVERY CYCLE)
     Route: 041
     Dates: start: 20130116, end: 20130116
  7. ZALTRAP [Suspect]
     Dosage: 4 MG/KG, EVERY TWO WEEKS (EVERY CYCLE)
     Route: 041
     Dates: start: 20130129, end: 20130129
  8. ZALTRAP [Suspect]
     Dosage: 4 MG/KG, EVERY TWO WEEKS (EVERY CYCLE)
     Route: 041
     Dates: start: 20130213, end: 20130213
  9. LEUCOVORIN [Suspect]
     Indication: COLORECTAL CANCER METASTATIC
     Dosage: EVERY CYCLE
     Route: 042
     Dates: start: 20130116, end: 20130116
  10. LEUCOVORIN [Suspect]
     Dosage: EVERY CYCLE
     Route: 042
     Dates: start: 20130129, end: 20130129
  11. LEUCOVORIN [Suspect]
     Dosage: EVERY CYCLE
     Route: 042
     Dates: start: 20130213, end: 20130213
  12. RANITIDINE [Concomitant]
     Dosage: UNK
     Dates: start: 201202
  13. FEOSOL [Concomitant]
     Dosage: UNK
     Dates: start: 2006
  14. EMEND TRI PACK [Concomitant]
     Dosage: UNK
     Dates: start: 20130129, end: 20130131
  15. ONDANSETRON [Concomitant]
     Dosage: UNK
     Dates: start: 20120207
  16. LORAZEPAM [Concomitant]
     Dosage: UNK
     Dates: start: 20120207
  17. HYDROCODONE [Concomitant]
     Dosage: UNK
     Dates: start: 20120207

REACTIONS (4)
  - Gastrointestinal haemorrhage [Unknown]
  - Hypertension [Unknown]
  - Headache [Recovered/Resolved]
  - Epistaxis [Unknown]
